FAERS Safety Report 9988040 (Version 2)
Quarter: 2014Q1

REPORT INFORMATION
  Report Type: Spontaneous
  Country: US (occurrence: US)
  Receive Date: 20140307
  Receipt Date: 20140307
  Transmission Date: 20141002
  Serious: Yes (Other)
  Sender: FDA-Public Use
  Company Number: US-GE HEALTHCARE MEDICAL DIAGNOSTICS-OSCN-PR-0708S-0342

PATIENT
  Age: 57 Year
  Sex: Female

DRUGS (3)
  1. OMNISCAN [Suspect]
     Indication: RENAL ARTERY STENOSIS
     Route: 042
     Dates: start: 20050425, end: 20050425
  2. OMNISCAN [Suspect]
     Route: 042
     Dates: start: 20050425, end: 20050425
  3. OMNISCAN [Suspect]
     Route: 042
     Dates: start: 20050427, end: 20050427

REACTIONS (1)
  - Nephrogenic systemic fibrosis [Recovering/Resolving]
